FAERS Safety Report 7421191-4 (Version None)
Quarter: 2011Q2

REPORT INFORMATION
  Report Type: 
  Country: None (occurrence: None)
  Receive Date: 20110418
  Receipt Date: 20110413
  Transmission Date: 20111010
  Serious: Yes (Hospitalization, Other)
  Sender: FDA-Public Use
  Company Number: ES-ABBOTT-11P-144-0718625-00

PATIENT
  Sex: Male

DRUGS (6)
  1. BUDESONIDE [Suspect]
     Dosage: 3 MILLIGRAMS DAILY
     Route: 048
     Dates: start: 20110201
  2. BUDESONIDE [Suspect]
     Dosage: 6 MILLIGRAMS DAILY
     Route: 048
     Dates: start: 20110101, end: 20110201
  3. PARACETAMOL [Concomitant]
     Indication: PYREXIA
     Dates: start: 20110315
  4. BUDESONIDE [Suspect]
     Indication: CROHN'S DISEASE
     Dosage: 9 MILLIGRAMS DAILY
     Route: 048
     Dates: start: 20101201, end: 20110101
  5. CLAVERSAL [Concomitant]
     Indication: CROHN'S DISEASE
     Dates: start: 20100501
  6. HUMIRA [Suspect]
     Indication: CROHN'S DISEASE
     Route: 058
     Dates: start: 20100901, end: 20110301

REACTIONS (5)
  - PNEUMOCYSTIS JIROVECI PNEUMONIA [None]
  - DYSPNOEA [None]
  - PYREXIA [None]
  - LIVER ABSCESS [None]
  - DRUG INEFFECTIVE [None]
